FAERS Safety Report 18650492 (Version 2)
Quarter: 2021Q2

REPORT INFORMATION
  Report Type: Spontaneous
  Country: US (occurrence: US)
  Receive Date: 20201222
  Receipt Date: 20210622
  Transmission Date: 20210717
  Serious: Yes (Other)
  Sender: FDA-Public Use
  Company Number: US-PERRIGO-20US018103

PATIENT
  Age: 70 Year
  Sex: Female

DRUGS (8)
  1. OMEPRAZOLE                         /00661202/ [Suspect]
     Active Substance: OMEPRAZOLE SODIUM
     Dosage: 20 MG, QD
     Route: 048
     Dates: start: 20100427, end: 20131014
  2. PANTOPRAZOLE                       /01263204/ [Suspect]
     Active Substance: PANTOPRAZOLE SODIUM
     Indication: GASTROOESOPHAGEAL REFLUX DISEASE
     Dosage: 40 MG, QD
     Route: 065
     Dates: start: 201405, end: 201410
  3. PRILOSEC OTC [Suspect]
     Active Substance: OMEPRAZOLE MAGNESIUM
     Indication: GASTROOESOPHAGEAL REFLUX DISEASE
     Dosage: 20 MG, QD
     Route: 065
     Dates: start: 2004, end: 2009
  4. PRILOSEC [Suspect]
     Active Substance: OMEPRAZOLE MAGNESIUM
     Indication: PRODUCT USED FOR UNKNOWN INDICATION
     Dosage: 20 MG, QD
     Route: 048
     Dates: start: 20111110
  5. PREVACID 24 HR [Suspect]
     Active Substance: LANSOPRAZOLE
     Indication: GASTROOESOPHAGEAL REFLUX DISEASE
     Dosage: 15 MG, QD
     Route: 065
     Dates: start: 2009, end: 2012
  6. OMEPRAZOLE                         /00661202/ [Suspect]
     Active Substance: OMEPRAZOLE SODIUM
     Indication: GASTROOESOPHAGEAL REFLUX DISEASE
     Dosage: 20 MG, QD
     Route: 065
     Dates: start: 201004, end: 201007
  7. PANTOPRAZOLE                       /01263204/ [Suspect]
     Active Substance: PANTOPRAZOLE SODIUM
     Dosage: 40 MG, BID
     Route: 048
     Dates: start: 20140516, end: 20140923
  8. NEXIUM 24HR [Suspect]
     Active Substance: ESOMEPRAZOLE MAGNESIUM
     Indication: GASTROOESOPHAGEAL REFLUX DISEASE
     Dosage: 20 MG, QD
     Route: 065
     Dates: start: 2014

REACTIONS (11)
  - Hydronephrosis [Unknown]
  - Hypertensive nephropathy [Recovered/Resolved]
  - Dysuria [Unknown]
  - Chronic kidney disease [Recovered/Resolved]
  - Chronic kidney disease [Unknown]
  - Renal impairment [Unknown]
  - Nephropathy [Unknown]
  - Nocturia [Unknown]
  - Renal disorder [Unknown]
  - Acute kidney injury [Not Recovered/Not Resolved]
  - Renal failure [Unknown]

NARRATIVE: CASE EVENT DATE: 20120613
